FAERS Safety Report 8335270-0 (Version None)
Quarter: 2012Q2

REPORT INFORMATION
  Report Type: 
  Country: None (occurrence: None)
  Receive Date: 20120503
  Receipt Date: 20120418
  Transmission Date: 20120825
  Serious: Yes (Other)
  Sender: FDA-Public Use
  Company Number: CHPA2012US009677

PATIENT
  Sex: Male

DRUGS (2)
  1. MICONAZOLE NITRATE [Suspect]
     Indication: PROPHYLAXIS
     Dosage: UNK, QD
     Route: 061
     Dates: start: 19620101
  2. MICONAZOLE NITRATE [Suspect]
     Dosage: UNK, QD
     Route: 061

REACTIONS (5)
  - FLUID OVERLOAD [None]
  - CARDIAC DISORDER [None]
  - INCORRECT DRUG ADMINISTRATION DURATION [None]
  - EXPIRED DRUG ADMINISTERED [None]
  - OFF LABEL USE [None]
